FAERS Safety Report 7784299-X (Version None)
Quarter: 2011Q3

REPORT INFORMATION
  Report Type: 
  Country: None (occurrence: None)
  Receive Date: 20110928
  Receipt Date: 20110916
  Transmission Date: 20111222
  Serious: Yes (Life-Threatening, Hospitalization, Disabling)
  Sender: FDA-Public Use
  Company Number: FR-ELI_LILLY_AND_COMPANY-FR201107003083

PATIENT
  Age: 67 Year
  Sex: Male
  Weight: 61 kg

DRUGS (19)
  1. ALIMTA [Suspect]
     Indication: NON-SMALL CELL LUNG CANCER
     Dosage: 500 MG/M2, EVERY 3 WEEKS, OR 875MG/INFUSION
     Route: 042
     Dates: start: 20110705, end: 20110705
  2. CANDESARTAN CILEXETIL [Concomitant]
     Dosage: 4 MG, QD
  3. ATENOLOL [Concomitant]
     Dosage: UNK, UNKNOWN
  4. FENOFIBRATE [Concomitant]
     Dosage: 300 MG, QD
  5. SMECTA                             /00837601/ [Concomitant]
     Dosage: UNK, TID
  6. METFORMIN HCL [Concomitant]
     Dosage: 700 MG, BID
  7. SPECIAFOLDINE [Concomitant]
     Indication: VITAMIN SUPPLEMENTATION
     Dosage: 0.4 UG, QD
     Route: 048
     Dates: start: 20110622
  8. CORTICOSTEROIDS [Concomitant]
     Indication: PROPHYLAXIS
     Dosage: UNK
  9. OXYCODONE HCL [Concomitant]
     Dosage: 5 MG, UNKNOWN
     Dates: start: 20110620
  10. ZOFRAN [Concomitant]
     Dosage: 8 MG, BID
     Dates: start: 20110620
  11. TRIMEPRAZINE TARTRATE [Concomitant]
     Dosage: 10 MG, QD
     Dates: start: 20110620
  12. PRIMPERAN TAB [Concomitant]
     Dosage: UNK, PRN
     Dates: start: 20110707
  13. LOVENOX [Concomitant]
     Dosage: 0.8 ML, QD
     Route: 058
     Dates: start: 20110703
  14. CARBOPLATIN [Concomitant]
     Indication: NON-SMALL CELL LUNG CANCER
     Dosage: 1100 MG, UNK
     Route: 042
     Dates: start: 20110705, end: 20110705
  15. ATENOLOL [Concomitant]
     Dosage: 50 MG, BID
  16. VITAMIN B-12 [Concomitant]
     Indication: VITAMIN SUPPLEMENTATION
     Dosage: UNK
  17. PROZAC [Concomitant]
     Dosage: 20 MG, BID
  18. ADALAT [Concomitant]
     Dosage: 1 DF, QD
  19. OXYCONTIN [Concomitant]
     Dosage: 2 DF, QD
     Dates: start: 20110620

REACTIONS (7)
  - ASTHENIA [None]
  - TRANSAMINASES INCREASED [None]
  - DIARRHOEA [None]
  - HYPOKALAEMIA [None]
  - HYPONATRAEMIA [None]
  - COLITIS EROSIVE [None]
  - ANAEMIA [None]
